FAERS Safety Report 18000969 (Version 1)
Quarter: 2020Q3

REPORT INFORMATION
  Report Type: Spontaneous
  Country: GB (occurrence: GB)
  Receive Date: 20200709
  Receipt Date: 20200709
  Transmission Date: 20201103
  Serious: Yes (Disabling, Other)
  Sender: FDA-Public Use
  Company Number: GB-MYLANLABS-2020M1060834

PATIENT
  Age: 37 Year
  Sex: Female
  Weight: 98 kg

DRUGS (4)
  1. CITALOPRAM [Concomitant]
     Active Substance: CITALOPRAM HYDROBROMIDE
  2. GABAPENTIN. [Suspect]
     Active Substance: GABAPENTIN
     Indication: PRODUCT USED FOR UNKNOWN INDICATION
     Dosage: 600 MILLIGRAM, QD
     Route: 048
     Dates: start: 2012
  3. KADCYLA [Concomitant]
     Active Substance: ADO-TRASTUZUMAB EMTANSINE
  4. ZOMORPH [Concomitant]
     Active Substance: MORPHINE SULFATE

REACTIONS (5)
  - Anorgasmia [Not Recovered/Not Resolved]
  - Vulvovaginal pain [Unknown]
  - Vaginal haemorrhage [Unknown]
  - Genito-pelvic pain/penetration disorder [Unknown]
  - Vulvovaginal dryness [Unknown]

NARRATIVE: CASE EVENT DATE: 2012
